FAERS Safety Report 5874571-2 (Version None)
Quarter: 2008Q3

REPORT INFORMATION
  Report Type: 
  Country: None (occurrence: None)
  Receive Date: 20080909
  Receipt Date: 20080905
  Transmission Date: 20090109
  Serious: Yes (Death, Other)
  Sender: FDA-Public Use
  Company Number: PHHY2008JP14402

PATIENT
  Sex: Male

DRUGS (10)
  1. ZOMETA [Suspect]
     Indication: HYPERCALCAEMIA
     Dosage: 4 MG
     Route: 042
     Dates: start: 20060901, end: 20061201
  2. AREDIA [Suspect]
     Indication: HYPERCALCAEMIA
     Dosage: 30 MG
     Route: 042
     Dates: start: 20040628, end: 20051201
  3. AREDIA [Suspect]
     Dosage: 60 MG
     Dates: start: 20060101, end: 20060801
  4. PREDNISONE [Concomitant]
     Route: 048
  5. ALKERAN [Concomitant]
     Dosage: UNK
     Route: 048
     Dates: start: 20040628, end: 20061201
  6. VINCRISTINE [Concomitant]
     Indication: NEOPLASM
  7. VINCRISTINE [Concomitant]
     Indication: LUNG NEOPLASM MALIGNANT
  8. MUCOSTA [Concomitant]
     Route: 048
  9. LANSOPRAZOLE [Concomitant]
     Route: 048
  10. ALLOPURINOL [Concomitant]
     Route: 048

REACTIONS (13)
  - ABSCESS [None]
  - BONE DISORDER [None]
  - DENTURE WEARER [None]
  - IMPAIRED HEALING [None]
  - MALIGNANT NEOPLASM PROGRESSION [None]
  - NEOPLASM PROGRESSION [None]
  - OSTEOMYELITIS [None]
  - OSTEONECROSIS [None]
  - PRIMARY SEQUESTRUM [None]
  - PURULENT DISCHARGE [None]
  - SEQUESTRECTOMY [None]
  - SINUSITIS [None]
  - TOOTH EXTRACTION [None]
